FAERS Safety Report 6677318-5 (Version None)
Quarter: 2010Q2

REPORT INFORMATION
  Report Type: 
  Country: None (occurrence: None)
  Receive Date: 20100409
  Receipt Date: 20100409
  Transmission Date: 20101027
  Serious: No
  Sender: FDA-Public Use
  Company Number: None

PATIENT
  Age: 14 Year
  Sex: Female
  Weight: 63 kg

DRUGS (2)
  1. MORPHINE [Suspect]
     Indication: PAIN
     Dosage: 6 MG X1 IV
     Route: 042
     Dates: start: 20100204
  2. ZOFRAN [Concomitant]

REACTIONS (2)
  - INJECTION SITE ERYTHEMA [None]
  - PRURITUS [None]
